FAERS Safety Report 24897089 (Version 1)
Quarter: 2025Q1

REPORT INFORMATION
  Report Type: Spontaneous
  Country: GB (occurrence: GB)
  Receive Date: 20250128
  Receipt Date: 20250128
  Transmission Date: 20250409
  Serious: Yes (Other)
  Sender: ALKEM
  Company Number: None

PATIENT
  Age: 84 Year
  Sex: Female
  Weight: 72 kg

DRUGS (20)
  1. CEPHALEXIN [Suspect]
     Active Substance: CEPHALEXIN
     Indication: Product used for unknown indication
     Route: 048
  2. Adizem-SR (Diltiazem hydrochloride) [Concomitant]
     Indication: Product used for unknown indication
     Route: 048
     Dates: start: 20231206
  3. AMITRIPTYLINE HYDROCHLORIDE [Concomitant]
     Active Substance: AMITRIPTYLINE HYDROCHLORIDE
     Indication: Product used for unknown indication
     Route: 048
     Dates: start: 20240227, end: 20240423
  4. DICLOFENAC DIETHYLAMINE [Concomitant]
     Active Substance: DICLOFENAC DIETHYLAMINE
     Indication: Product used for unknown indication
     Route: 061
     Dates: start: 20231206
  5. DICLOFENAC SODIUM [Concomitant]
     Active Substance: DICLOFENAC SODIUM
     Indication: Product used for unknown indication
     Route: 065
     Dates: start: 20231206
  6. DIAZEPAM [Concomitant]
     Active Substance: DIAZEPAM
     Indication: Pain
     Route: 048
     Dates: start: 20240209, end: 20240308
  7. Doublebase (Isopropyl Myristate, Liquid Paraffin) [Concomitant]
     Indication: Product used for unknown indication
     Route: 061
     Dates: start: 20231206
  8. DULOXETINE [Concomitant]
     Active Substance: DULOXETINE
     Indication: Product used for unknown indication
     Route: 048
     Dates: start: 20240209, end: 20240308
  9. Epipen (Adrenaline) [Concomitant]
     Indication: Product used for unknown indication
     Route: 065
     Dates: start: 20231206
  10. FAMOTIDINE [Concomitant]
     Active Substance: FAMOTIDINE
     Indication: Dyspepsia
     Route: 048
     Dates: start: 20231206
  11. FLUDROCORTISONE [Concomitant]
     Active Substance: FLUDROCORTISONE
     Indication: Product used for unknown indication
     Route: 048
     Dates: start: 20231206
  12. Fybogel (Ispaghula Husk, Plantago Ovata) [Concomitant]
     Indication: Product used for unknown indication
     Route: 065
     Dates: start: 20231206
  13. Gaviscon Advance (Sodium Alginate, Potassium Hydrogen Carbonate, Potas [Concomitant]
     Indication: Product used for unknown indication
     Route: 048
     Dates: start: 20231206
  14. HYDROCORTISONE [Concomitant]
     Active Substance: HYDROCORTISONE
     Indication: Product used for unknown indication
     Route: 065
     Dates: start: 20210208
  15. BUTYLSCOPOLAMINE BROMIDE [Concomitant]
     Active Substance: BUTYLSCOPOLAMINE BROMIDE
     Indication: Product used for unknown indication
     Route: 048
     Dates: start: 20231206
  16. MOMETASONE [Concomitant]
     Active Substance: MOMETASONE
     Indication: Product used for unknown indication
     Route: 061
     Dates: start: 20231206
  17. OMEPRAZOLE [Concomitant]
     Active Substance: OMEPRAZOLE
     Indication: Dyspepsia
     Route: 048
     Dates: start: 20231206
  18. PREDNISOLONE [Concomitant]
     Active Substance: PREDNISOLONE
     Indication: Product used for unknown indication
     Route: 048
     Dates: start: 20231206
  19. Stugeron (Cinnarizine) [Concomitant]
     Indication: Product used for unknown indication
     Route: 048
     Dates: start: 20231206
  20. TELMISARTAN [Concomitant]
     Active Substance: TELMISARTAN
     Indication: Product used for unknown indication
     Route: 048
     Dates: start: 20231206

REACTIONS (1)
  - Anaphylactic reaction [Recovered/Resolved]
